FAERS Safety Report 24665632 (Version 1)
Quarter: 2024Q4

REPORT INFORMATION
  Report Type: Spontaneous
  Country: US (occurrence: US)
  Receive Date: 20241126
  Receipt Date: 20241126
  Transmission Date: 20250115
  Serious: Yes (Other)
  Sender: AMGEN
  Company Number: US-AMGEN-USASP2024231360

PATIENT
  Age: 62 Year
  Sex: Female

DRUGS (1)
  1. PREDNISONE [Suspect]
     Active Substance: PREDNISONE
     Indication: Transplant rejection
     Dosage: HIGH-DOSE
     Route: 048

REACTIONS (3)
  - Acute kidney injury [Recovering/Resolving]
  - Pyelonephritis acute [Recovering/Resolving]
  - Klebsiella urinary tract infection [Unknown]
